FAERS Safety Report 11398766 (Version 2)
Quarter: 2015Q3

REPORT INFORMATION
  Report Type: Report from Study
  Country: VE (occurrence: VE)
  Receive Date: 20150820
  Receipt Date: 20150908
  Transmission Date: 20151125
  Serious: Yes (Other)
  Sender: FDA-Public Use
  Company Number: PHHY2015VE100567

PATIENT
  Sex: Female

DRUGS (3)
  1. SANDIMMUN NEORAL [Suspect]
     Active Substance: CYCLOSPORINE
     Indication: BONE MARROW FAILURE
     Dosage: 400 MG, QD
     Route: 065
     Dates: start: 20120730
  2. ERYTHROPOETIN [Concomitant]
     Active Substance: ERYTHROPOIETIN
     Indication: RENAL DISORDER
     Dosage: 40 MG, WEEKLY
     Route: 065
     Dates: start: 2012
  3. SANDIMMUN NEORAL [Suspect]
     Active Substance: CYCLOSPORINE
     Dosage: 200 MG, QD
     Route: 065

REACTIONS (10)
  - Condition aggravated [Not Recovered/Not Resolved]
  - Chills [Recovered/Resolved]
  - Sneezing [Recovered/Resolved]
  - Infection parasitic [Unknown]
  - Dizziness [Recovered/Resolved]
  - Product use issue [Unknown]
  - Headache [Recovered/Resolved]
  - Malaise [Not Recovered/Not Resolved]
  - Pyrexia [Recovered/Resolved]
  - Haemoglobin decreased [Not Recovered/Not Resolved]

NARRATIVE: CASE EVENT DATE: 2014
